FAERS Safety Report 8534754-X (Version None)
Quarter: 2012Q3

REPORT INFORMATION
  Report Type: 
  Country: None (occurrence: None)
  Receive Date: 20120724
  Receipt Date: 20120709
  Transmission Date: 20120928
  Serious: No
  Sender: FDA-Public Use
  Company Number: US-ASTRAZENECA-2010SE47945

PATIENT
  Age: 65 Year
  Sex: Female
  Weight: 72.6 kg

DRUGS (20)
  1. NEXIUM [Suspect]
     Route: 048
     Dates: start: 19970101
  2. SEROQUEL [Suspect]
     Route: 048
     Dates: start: 20090101
  3. ALLOPURINOL [Concomitant]
  4. TOPROL-XL [Suspect]
     Indication: HYPERTENSION
     Route: 048
  5. SEROQUEL [Suspect]
     Indication: BIPOLAR DISORDER
     Route: 048
     Dates: start: 19970101, end: 20090101
  6. SEROQUEL [Suspect]
     Route: 048
  7. SEROQUEL [Suspect]
     Route: 048
  8. SEROQUEL [Suspect]
     Dosage: GENERIC
     Route: 048
  9. SEROQUEL [Suspect]
     Route: 048
  10. SEROQUEL [Suspect]
     Route: 048
  11. SIMVASTATIN [Concomitant]
     Indication: BLOOD CHOLESTEROL ABNORMAL
  12. SEROQUEL [Suspect]
     Route: 048
  13. DEXALINT [Concomitant]
  14. SEROQUEL [Suspect]
     Indication: BIPOLAR II DISORDER
     Route: 048
     Dates: start: 19970101, end: 20090101
  15. MELOXICAM [Concomitant]
  16. SEROQUEL [Suspect]
     Route: 048
     Dates: start: 20090101
  17. SEROQUEL [Suspect]
     Dosage: GENERIC
     Route: 048
  18. SEROQUEL [Suspect]
     Route: 048
  19. LEVOTHYROXINE SODIUM [Concomitant]
     Indication: THYROID DISORDER
  20. TERBUFALINE [Concomitant]

REACTIONS (11)
  - AMNESIA [None]
  - PANIC ATTACK [None]
  - SPOUSAL ABUSE [None]
  - HEAD INJURY [None]
  - MEMORY IMPAIRMENT [None]
  - ANXIETY DISORDER [None]
  - NECK PAIN [None]
  - BACK PAIN [None]
  - ADVERSE EVENT [None]
  - POST-TRAUMATIC STRESS DISORDER [None]
  - DEPRESSION [None]
